FAERS Safety Report 4336879-1 (Version None)
Quarter: 2004Q2

REPORT INFORMATION
  Report Type: 
  Country: None (occurrence: None)
  Receive Date: 20040408
  Receipt Date: 20040329
  Transmission Date: 20050107
  Serious: Yes (Death)
  Sender: FDA-Public Use
  Company Number: 163-20785-04030225(0)

PATIENT
  Age: 76 Year
  Sex: Male

DRUGS (1)
  1. THALOMID [Suspect]
     Indication: RHABDOMYOSARCOMA
     Dosage: 50-200MG, DAILY, ORAL
     Route: 048
     Dates: start: 20040204, end: 20040215

REACTIONS (1)
  - MALIGNANT PLEURAL EFFUSION [None]
